FAERS Safety Report 5953517-2 (Version None)
Quarter: 2008Q4

REPORT INFORMATION
  Report Type: 
  Country: None (occurrence: None)
  Receive Date: 20081114
  Receipt Date: 20081107
  Transmission Date: 20090506
  Serious: Yes (Other)
  Sender: FDA-Public Use
  Company Number: PHHY2008UA27633

PATIENT
  Age: 40 Year
  Sex: Female

DRUGS (1)
  1. ACLASTA [Suspect]
     Indication: OSTEOPOROSIS
     Dosage: 5 MG ONCE A YEAR
     Route: 042
     Dates: start: 20080901

REACTIONS (7)
  - ARRHYTHMIA [None]
  - ASTHENIA [None]
  - HYPERTENSION [None]
  - MALAISE [None]
  - MENSTRUATION IRREGULAR [None]
  - OEDEMA [None]
  - TACHYCARDIA [None]
